FAERS Safety Report 13482575 (Version 2)
Quarter: 2017Q2

REPORT INFORMATION
  Report Type: Report from Study
  Country: US (occurrence: US)
  Receive Date: 20170426
  Receipt Date: 20170505
  Transmission Date: 20170830
  Serious: Yes (Other)
  Sender: FDA-Public Use
  Company Number: US-ROCHE-1923851

PATIENT

DRUGS (6)
  1. CYCLOPHOSPHAMIDE. [Suspect]
     Active Substance: CYCLOPHOSPHAMIDE
     Indication: DIFFUSE LARGE B-CELL LYMPHOMA
     Dosage: DOSE AS PER PROTOCOL: PHASE I AND II: 750 MG/M2 VEIN OVER ABOUT 1 HOUR ON DAY 1 OF ALL CYCLES.
     Route: 042
  2. VINCRISTINE [Suspect]
     Active Substance: VINCRISTINE
     Indication: DIFFUSE LARGE B-CELL LYMPHOMA
     Dosage: DOSE AS PER PROTCOL:PHASE I AND II: 1.4 MG/M2 BY VEIN ON DAY 1 OF ALL CYCLES
     Route: 042
  3. PREDNISONE. [Suspect]
     Active Substance: PREDNISONE
     Indication: DIFFUSE LARGE B-CELL LYMPHOMA
     Dosage: DOSE AS PER PROTOCOL: PHASE I AND II: 100 MG BY MOUTH DAILY ON DAYS 1 - 5 OF EACH 21 DAY CYCLE.
     Route: 048
  4. OBINUTUZUMAB [Suspect]
     Active Substance: OBINUTUZUMAB
     Indication: DIFFUSE LARGE B-CELL LYMPHOMA
     Dosage: DOSE AS PER PROTOCOL: 1000 MG BY VEIN ON DAYS 1, 8, AND 15 OF CYCLE 1 AND DAY 1 OF CYCLES 2 - 6
     Route: 042
  5. LENALIDOMIDE [Suspect]
     Active Substance: LENALIDOMIDE
     Indication: DIFFUSE LARGE B-CELL LYMPHOMA
     Dosage: DOSE AS PER PROTOCOL: 15 MG ON DAYS 1-14 OF EACH 21 DAY CYCLE
     Route: 048
  6. DOXORUBICIN [Suspect]
     Active Substance: DOXORUBICIN
     Indication: DIFFUSE LARGE B-CELL LYMPHOMA
     Dosage: DOSE AS PER PROTOCOL: PHASE I AND II: 50 MG/M2 BY VEIN OVER ABOUT 15 MINUTES EACH ON DAY 1 OF ALL CY
     Route: 042

REACTIONS (4)
  - Pain [Recovered/Resolved]
  - Platelet count decreased [Recovered/Resolved with Sequelae]
  - Febrile neutropenia [Recovered/Resolved]
  - Neutrophil count decreased [Recovered/Resolved with Sequelae]

NARRATIVE: CASE EVENT DATE: 20160916
